FAERS Safety Report 6881942-4 (Version None)
Quarter: 2010Q3

REPORT INFORMATION
  Report Type: 
  Country: None (occurrence: None)
  Receive Date: 20100727
  Receipt Date: 20100511
  Transmission Date: 20110219
  Serious: No
  Sender: FDA-Public Use
  Company Number: US-MYLANLABS-2010S1007118

PATIENT
  Age: 56 Year
  Sex: Female

DRUGS (2)
  1. CIPROFLOXACIN [Suspect]
     Indication: UPPER RESPIRATORY TRACT INFECTION
     Route: 048
     Dates: start: 20100408, end: 20100414
  2. CIPROFLOXACIN [Suspect]
     Indication: INFLUENZA LIKE ILLNESS
     Route: 048
     Dates: start: 20100408, end: 20100414

REACTIONS (2)
  - DRUG INEFFECTIVE [None]
  - UPPER RESPIRATORY TRACT INFECTION [None]
